FAERS Safety Report 17192363 (Version 2)
Quarter: 2020Q1

REPORT INFORMATION
  Report Type: Report from Study
  Country: MX (occurrence: MX)
  Receive Date: 20191223
  Receipt Date: 20200108
  Transmission Date: 20200409
  Serious: Yes (Hospitalization, Other)
  Sender: FDA-Public Use
  Company Number: NVSC2019MX076710

PATIENT
  Age: 75 Year
  Sex: Female
  Weight: 64 kg

DRUGS (2)
  1. EXFORGE HCT [Suspect]
     Active Substance: AMLODIPINE BESYLATE\HYDROCHLOROTHIAZIDE\VALSARTAN
     Indication: HYPERTENSION
     Dosage: 1 DF, QD, (5/160/12.5MG), APPROXIMATELY 10 YEARS AGO
     Route: 048
     Dates: end: 201910
  2. EXFORGE HCT [Suspect]
     Active Substance: AMLODIPINE BESYLATE\HYDROCHLOROTHIAZIDE\VALSARTAN
     Dosage: 0.5 DF (5/160/12.5MG), QD
     Route: 048
     Dates: start: 201910

REACTIONS (7)
  - Lymphoma [Recovering/Resolving]
  - Product prescribing error [Unknown]
  - Wrong technique in product usage process [Unknown]
  - Blood pressure decreased [Unknown]
  - Platelet count decreased [Recovered/Resolved]
  - Dizziness [Recovered/Resolved]
  - Malaise [Unknown]

NARRATIVE: CASE EVENT DATE: 2012
